FAERS Safety Report 9458633 (Version 1)
Quarter: 2013Q3

REPORT INFORMATION
  Report Type: Spontaneous
  Country: US (occurrence: None)
  Receive Date: 20130813
  Receipt Date: 20130813
  Transmission Date: 20140515
  Serious: Yes (Life-Threatening)
  Sender: FDA-Public Use
  Company Number: None

PATIENT
  Age: 55 Year
  Sex: Female
  Weight: 81.65 kg

DRUGS (5)
  1. PEGASYS [Suspect]
     Indication: HEPATITIS C
     Dosage: PEGASYS 180MCG/0.5ML PFS  SUBCUTANEOUSLY  EVERY WEEK
     Route: 058
  2. INCIVEK 375MG TAB [Suspect]
     Dosage: INCIVEK 375MG TAB (4X42 TABS)  EVERY 8 HOURS  BY MOUTH
     Route: 048
  3. MULTIVITAMIN [Concomitant]
  4. TRAZODONE [Concomitant]
  5. WELLBUTRIN [Concomitant]

REACTIONS (1)
  - Haemoglobin decreased [None]
